FAERS Safety Report 12884674 (Version 1)
Quarter: 2016Q4

REPORT INFORMATION
  Report Type: Spontaneous
  Country: MX (occurrence: MX)
  Receive Date: 20161026
  Receipt Date: 20161026
  Transmission Date: 20170207
  Serious: Yes (Hospitalization, Other)
  Sender: FDA-Public Use
  Company Number: MX-SA-2016SA192561

PATIENT
  Age: 74 Year
  Sex: Female
  Weight: 76 kg

DRUGS (7)
  1. SOLOSTAR [Concomitant]
     Active Substance: DEVICE
     Dates: start: 2010
  2. LANTUS SOLOSTAR [Suspect]
     Active Substance: INSULIN GLARGINE
     Indication: DIABETES MELLITUS
     Route: 058
     Dates: start: 2010
  3. APROVEL [Suspect]
     Active Substance: IRBESARTAN
     Indication: HYPERTENSION
     Route: 048
     Dates: start: 2011, end: 201610
  4. APROVEL [Suspect]
     Active Substance: IRBESARTAN
     Indication: HYPERTENSION
     Route: 048
     Dates: start: 201610
  5. SIMVASTATIN. [Concomitant]
     Active Substance: SIMVASTATIN
     Indication: HYPERCHOLESTEROLAEMIA
     Route: 048
     Dates: start: 2001
  6. ACETYLSALICYLIC ACID [Concomitant]
     Active Substance: ASPIRIN
     Indication: HYPERCHOLESTEROLAEMIA
     Route: 048
     Dates: start: 2001
  7. RAMIPRIL. [Concomitant]
     Active Substance: RAMIPRIL
     Indication: HYPERCHOLESTEROLAEMIA
     Route: 048
     Dates: start: 2001

REACTIONS (6)
  - Hyperglycaemia [Not Recovered/Not Resolved]
  - Deafness [Not Recovered/Not Resolved]
  - Ischaemic stroke [Recovered/Resolved]
  - Pneumonia [Recovered/Resolved]
  - Gastritis [Not Recovered/Not Resolved]
  - Hypertension [Recovered/Resolved]

NARRATIVE: CASE EVENT DATE: 2010
